FAERS Safety Report 7476969-8 (Version None)
Quarter: 2011Q2

REPORT INFORMATION
  Report Type: 
  Country: None (occurrence: None)
  Receive Date: 20110512
  Receipt Date: 20100510
  Transmission Date: 20111010
  Serious: No
  Sender: FDA-Public Use
  Company Number: US-AMGEN-TCS411625

PATIENT
  Age: 65 Year
  Sex: Female

DRUGS (1)
  1. ENBREL [Suspect]
     Indication: RHEUMATOID ARTHRITIS
     Dosage: 50 MG, QWK
     Route: 058
     Dates: end: 20100503

REACTIONS (8)
  - ANAEMIA [None]
  - WEIGHT DECREASED [None]
  - LUNG INFECTION [None]
  - LUNG DISORDER [None]
  - HYPOPHAGIA [None]
  - HYPERHIDROSIS [None]
  - COUGH [None]
  - HYPOTENSION [None]
